FAERS Safety Report 14665595 (Version 2)
Quarter: 2018Q2

REPORT INFORMATION
  Report Type: Spontaneous
  Country: FR (occurrence: FR)
  Receive Date: 20180321
  Receipt Date: 20180608
  Transmission Date: 20180711
  Serious: Yes (Hospitalization)
  Sender: FDA-Public Use
  Company Number: FR-UCBSA-2018010794

PATIENT
  Age: 24 Year
  Sex: Male

DRUGS (6)
  1. DOLIPRANE [Concomitant]
     Active Substance: ACETAMINOPHEN
     Indication: PRODUCT USED FOR UNKNOWN INDICATION
     Route: 065
  2. AERIUS [Concomitant]
     Active Substance: DESLORATADINE
     Indication: PRODUCT USED FOR UNKNOWN INDICATION
     Dosage: UNK
     Route: 065
  3. KEPPRA [Suspect]
     Active Substance: LEVETIRACETAM
     Indication: PRODUCT USED FOR UNKNOWN INDICATION
     Dosage: 1 DF, 2X/DAY (BID)
  4. AMOXICILLIN. [Concomitant]
     Active Substance: AMOXICILLIN
     Indication: PRODUCT USED FOR UNKNOWN INDICATION
     Route: 065
  5. AMOXICILLIN SANDOZ [Suspect]
     Active Substance: AMOXICILLIN
     Dosage: HALF TABLET (MORNING AND EVENING), 2X/DAY (BID)
     Route: 065
  6. AMOXICILLIN SANDOZ [Suspect]
     Active Substance: AMOXICILLIN
     Indication: ACUTE SINUSITIS
     Dosage: 1 G, BID (MORNING AND EVENING)
     Dates: start: 20180216, end: 2018

REACTIONS (15)
  - Disorientation [Unknown]
  - Fall [Unknown]
  - Epilepsy [Unknown]
  - Nausea [Unknown]
  - Chromaturia [Unknown]
  - Epistaxis [Unknown]
  - Skin discolouration [Unknown]
  - Incorrect dose administered [Unknown]
  - Pyrexia [Unknown]
  - Vomiting [Unknown]
  - White blood cell count increased [Unknown]
  - Dyspnoea [Unknown]
  - Dizziness [Unknown]
  - Seizure [Unknown]
  - Cough [Unknown]

NARRATIVE: CASE EVENT DATE: 20180216
